FAERS Safety Report 4895343-1 (Version None)
Quarter: 2006Q1

REPORT INFORMATION
  Report Type: 
  Country: None (occurrence: None)
  Receive Date: 20060130
  Receipt Date: 20060120
  Transmission Date: 20060701
  Serious: Yes (Life-Threatening)
  Sender: FDA-Public Use
  Company Number: JP-MERCK-0601USA02671

PATIENT
  Age: 95 Year
  Sex: Female

DRUGS (10)
  1. PEPCID RPD [Suspect]
     Route: 048
     Dates: end: 20060118
  2. ASPIRIN [Concomitant]
     Route: 065
  3. BLOPRESS [Concomitant]
     Route: 065
  4. ATARAX [Concomitant]
     Route: 065
  5. LENDORMIN [Concomitant]
     Route: 065
  6. LORAZEPAM [Concomitant]
     Route: 065
  7. AMOBAN [Concomitant]
     Route: 065
  8. COLDRIN [Concomitant]
     Route: 065
  9. KAKKON-TO [Concomitant]
     Route: 065
  10. CEFCAPENE PIVOXIL HYDROCHLORIDE [Concomitant]
     Route: 065

REACTIONS (1)
  - ELECTROCARDIOGRAM QT PROLONGED [None]
